FAERS Safety Report 22115459 (Version 2)
Quarter: 2023Q2

REPORT INFORMATION
  Report Type: Spontaneous
  Country: IT (occurrence: IT)
  Receive Date: 20230320
  Receipt Date: 20230522
  Transmission Date: 20230722
  Serious: Yes (Life-Threatening)
  Sender: FDA-Public Use
  Company Number: IT-GSKCCFEMEA-Case-01692933_AE-68661

PATIENT

DRUGS (1)
  1. RELENZA [Suspect]
     Active Substance: ZANAMIVIR
     Indication: Product used for unknown indication
     Dosage: UNK

REACTIONS (1)
  - Complication associated with device [Unknown]
